FAERS Safety Report 16425437 (Version 1)
Quarter: 2019Q2

REPORT INFORMATION
  Report Type: Spontaneous
  Country: US (occurrence: US)
  Receive Date: 20190506
  Receipt Date: 20190506
  Transmission Date: 20190711
  Serious: No
  Sender: FDA-Public Use
  Company Number: None

PATIENT
  Age: 52 Year
  Sex: Female

DRUGS (1)
  1. HARVONI [Suspect]
     Active Substance: LEDIPASVIR\SOFOSBUVIR
     Indication: HEPATITIS C
     Dates: start: 20190411

REACTIONS (5)
  - Rash [None]
  - Headache [None]
  - Nausea [None]
  - Fatigue [None]
  - Upper respiratory tract infection [None]

NARRATIVE: CASE EVENT DATE: 20190411
